FAERS Safety Report 9284108 (Version 1)
Quarter: 2013Q2

REPORT INFORMATION
  Report Type: Spontaneous
  Country: VE (occurrence: VE)
  Receive Date: 20130510
  Receipt Date: 20130510
  Transmission Date: 20140414
  Serious: Yes (Other)
  Sender: FDA-Public Use
  Company Number: VE-TEVA-404470USA

PATIENT
  Sex: Male

DRUGS (3)
  1. TREANDA [Suspect]
     Indication: PLASMA CELL MYELOMA
     Dosage: UNKNOWN/D
  2. TREANDA [Suspect]
     Indication: NEOPLASM MALIGNANT
  3. TREANDA [Suspect]
     Indication: TRANSPLANT

REACTIONS (7)
  - Syncope [Recovering/Resolving]
  - Hypotension [Recovering/Resolving]
  - Bone pain [Recovering/Resolving]
  - Depressed mood [Recovering/Resolving]
  - Headache [Recovering/Resolving]
  - Vomiting [Recovering/Resolving]
  - Diarrhoea [Recovering/Resolving]
